FAERS Safety Report 13057319 (Version 1)
Quarter: 2016Q4

REPORT INFORMATION
  Report Type: Spontaneous
  Country: FR (occurrence: FR)
  Receive Date: 20161223
  Receipt Date: 20161223
  Transmission Date: 20170207
  Serious: Yes (Hospitalization)
  Sender: FDA-Public Use
  Company Number: FR-BAXTER-2016BAX063383

PATIENT
  Age: 60 Year
  Sex: Male
  Weight: 82 kg

DRUGS (21)
  1. UROMITEXAN 5 G/50 ML, SOLUTION INJECTABLE POUR PERFUSION EN FLACON [Suspect]
     Active Substance: MESNA
     Indication: PROPHYLAXIS
     Route: 065
  2. ENDOXAN 1000 MG, POUDRE POUR SOLUTION INJECTABLE [Suspect]
     Active Substance: CYCLOPHOSPHAMIDE
     Indication: B-CELL LYMPHOMA
     Dosage: COURSE-1 OF R-CHOP
     Route: 042
     Dates: start: 20150630
  3. VINCRISTINE [Suspect]
     Active Substance: VINCRISTINE
     Indication: B-CELL LYMPHOMA
     Dosage: COURSE 1 OF R-CHOP
     Route: 042
     Dates: start: 20150630
  4. ENDOXAN 1000 MG, POUDRE POUR SOLUTION INJECTABLE [Suspect]
     Active Substance: CYCLOPHOSPHAMIDE
     Dosage: COURSE-5 OF R-CHOP
     Route: 042
     Dates: start: 20151006
  5. VINCRISTINE [Suspect]
     Active Substance: VINCRISTINE
     Dosage: COURSE 6 OF R-CHOP
     Route: 042
     Dates: start: 20151104
  6. MABTHERA [Suspect]
     Active Substance: RITUXIMAB
     Dosage: 4TH MAINTENANCE COURSE
     Route: 065
     Dates: start: 20160623
  7. EMEND [Concomitant]
     Active Substance: APREPITANT
     Indication: PRODUCT USED FOR UNKNOWN INDICATION
     Route: 065
  8. ENDOXAN 1000 MG, POUDRE POUR SOLUTION INJECTABLE [Suspect]
     Active Substance: CYCLOPHOSPHAMIDE
     Dosage: COURSE-6 OF R-CHOP
     Route: 042
     Dates: start: 20151104
  9. MABTHERA [Suspect]
     Active Substance: RITUXIMAB
     Dosage: 6TH MAINTENANCE COURSE
     Route: 065
     Dates: start: 20161017
  10. DOXORUBICIN [Suspect]
     Active Substance: DOXORUBICIN
     Dosage: COURSE 6 OF R-CHOP
     Route: 065
     Dates: start: 20151104
  11. MABTHERA [Suspect]
     Active Substance: RITUXIMAB
     Dosage: COURSE-5 OF R-CHOP
     Route: 042
     Dates: start: 20151006
  12. MABTHERA [Suspect]
     Active Substance: RITUXIMAB
     Dosage: COURSE-6 OF R-CHOP
     Route: 042
     Dates: start: 20151104
  13. POLARAMINE [Suspect]
     Active Substance: DEXCHLORPHENIRAMINE MALEATE
     Indication: PREMEDICATION
     Route: 065
  14. MABTHERA [Suspect]
     Active Substance: RITUXIMAB
     Indication: B-CELL LYMPHOMA
     Dosage: COURSE-1 OF R-CHOP
     Route: 042
     Dates: start: 20150630
  15. MABTHERA [Suspect]
     Active Substance: RITUXIMAB
     Dosage: MAINTENANCE TREATMENT FOR 2 YEARS
     Route: 065
     Dates: start: 20160106
  16. MABTHERA [Suspect]
     Active Substance: RITUXIMAB
     Dosage: 3RD MAINTENANCE COURSE
     Route: 065
     Dates: start: 20160428
  17. MABTHERA [Suspect]
     Active Substance: RITUXIMAB
     Dosage: 5TH MAINTENANCE COURSE
     Route: 065
     Dates: start: 20160822
  18. VINCRISTINE [Suspect]
     Active Substance: VINCRISTINE
     Dosage: COURSE 5 OF R-CHOP
     Route: 042
     Dates: start: 20151006
  19. DOXORUBICIN [Suspect]
     Active Substance: DOXORUBICIN
     Dosage: COURSE 5 OF R-CHOP
     Route: 065
     Dates: start: 20151006
  20. DOXORUBICIN [Suspect]
     Active Substance: DOXORUBICIN
     Indication: B-CELL LYMPHOMA
     Dosage: COURSE 1 OF R-CHOP
     Route: 065
     Dates: start: 20150630
  21. METHYLPREDNISOLONE. [Suspect]
     Active Substance: METHYLPREDNISOLONE
     Indication: PREMEDICATION
     Route: 065

REACTIONS (8)
  - Carbon monoxide diffusing capacity decreased [Not Recovered/Not Resolved]
  - Neuropathy peripheral [Recovered/Resolved]
  - Dyspnoea [Recovering/Resolving]
  - Myalgia [Unknown]
  - Hypoxia [Not Recovered/Not Resolved]
  - Pyrexia [Recovered/Resolved]
  - Neutropenia [Recovered/Resolved]
  - Nausea [Recovered/Resolved]

NARRATIVE: CASE EVENT DATE: 20150817
